FAERS Safety Report 8117010-3 (Version None)
Quarter: 2012Q1

REPORT INFORMATION
  Report Type: 
  Country: None (occurrence: None)
  Receive Date: 20120206
  Receipt Date: 20120125
  Transmission Date: 20120608
  Serious: Yes (Hospitalization, Other)
  Sender: FDA-Public Use
  Company Number: US-ROCHE-1006265

PATIENT
  Sex: Female
  Weight: 82.174 kg

DRUGS (15)
  1. ACCUTANE [Suspect]
     Dates: start: 20010401, end: 20011201
  2. VIOXX [Concomitant]
  3. AMITRIPTYLINE HCL [Concomitant]
  4. IMITREX [Concomitant]
  5. ALLEGRA [Concomitant]
  6. METHYLPREDNISOLONE [Concomitant]
  7. PROPOXYPHENE HCL AND ACETAMINOPHEN [Concomitant]
  8. CELEXA [Concomitant]
  9. FLONASE [Concomitant]
  10. ACCUTANE [Suspect]
     Indication: PRODUCT USED FOR UNKNOWN INDICATION
     Dates: start: 19981001, end: 19991101
  11. GUAIFENESIN [Concomitant]
  12. ULTRAM [Concomitant]
  13. CHOLESTYRAMINE [Concomitant]
  14. ALPRAZOLAM [Concomitant]
  15. ACLOVATE [Concomitant]

REACTIONS (8)
  - TACHYCARDIA [None]
  - CHOLELITHIASIS [None]
  - INFLAMMATORY BOWEL DISEASE [None]
  - VAGINAL FISTULA [None]
  - DEPRESSION [None]
  - INTESTINAL OBSTRUCTION [None]
  - COLITIS ULCERATIVE [None]
  - IRRITABLE BOWEL SYNDROME [None]
